FAERS Safety Report 14299776 (Version 13)
Quarter: 2019Q4

REPORT INFORMATION
  Report Type: Report from Study
  Country: None (occurrence: DE)
  Receive Date: 20171219
  Receipt Date: 20191213
  Transmission Date: 20200122
  Serious: Yes (Hospitalization, Other)
  Sender: FDA-Public Use
  Company Number: DE-ABBVIE-17K-062-2195245-00

PATIENT
  Age: 64 Year
  Sex: Female
  Weight: 70 kg

DRUGS (18)
  1. L-THYROXIN [Concomitant]
     Active Substance: LEVOTHYROXINE SODIUM
     Indication: PRODUCT USED FOR UNKNOWN INDICATION
  2. VIANI [Concomitant]
     Active Substance: FLUTICASONE PROPIONATE\SALMETEROL XINAFOATE
     Indication: ASTHMA
     Dosage: 50/100 UG FOLLOWING DISCUSSION
     Route: 055
  3. FLUTICASONE. [Concomitant]
     Active Substance: FLUTICASONE
     Indication: ASTHMA
     Route: 045
  4. SALBUTAMOL [Concomitant]
     Active Substance: ALBUTEROL
     Indication: ASTHMA
     Dosage: FREQUENCY TEXT:BEFORE LEVOFLOXACIN INHALATION
     Route: 055
  5. HUMIRA [Suspect]
     Active Substance: ADALIMUMAB
     Indication: PSORIATIC ARTHROPATHY
     Route: 058
     Dates: start: 2018, end: 20190218
  6. HUMIRA [Suspect]
     Active Substance: ADALIMUMAB
     Route: 058
     Dates: start: 2019, end: 20190625
  7. LEVOTHYROXINE. [Concomitant]
     Active Substance: LEVOTHYROXINE
     Indication: PRODUCT USED FOR UNKNOWN INDICATION
  8. AIRFLUSAL FORSPIRO [Concomitant]
     Active Substance: FLUTICASONE PROPIONATE\SALMETEROL XINAFOATE
     Indication: PRODUCT USED FOR UNKNOWN INDICATION
  9. AMGEVITA [Suspect]
     Active Substance: ADALIMUMAB
     Indication: PSORIASIS
  10. AIRFLUSAL FORSPIRO [Suspect]
     Active Substance: FLUTICASONE PROPIONATE\SALMETEROL XINAFOATE
     Indication: PRODUCT USED FOR UNKNOWN INDICATION
     Route: 055
     Dates: start: 20170715
  11. L-THYROXIN [Suspect]
     Active Substance: LEVOTHYROXINE SODIUM
     Indication: HYPOTHYROIDISM
     Route: 048
  12. EMSER SOLE [Concomitant]
     Indication: ASTHMA
     Dosage: AS REQUIRED 3 TIMES A DAY
     Route: 065
  13. HUMIRA [Suspect]
     Active Substance: ADALIMUMAB
     Route: 058
     Dates: start: 2019
  14. HUMIRA [Suspect]
     Active Substance: ADALIMUMAB
     Indication: PSORIASIS
     Route: 058
     Dates: start: 20170629
  15. SALBUTAMOL [Suspect]
     Active Substance: ALBUTEROL
     Indication: PRODUCT USED FOR UNKNOWN INDICATION
     Dosage: BEFORE LEVOFLOXACIN INHALATION
     Route: 055
  16. AMGEVITA [Suspect]
     Active Substance: ADALIMUMAB
     Indication: PSORIATIC ARTHROPATHY
     Route: 065
     Dates: start: 20190626
  17. AIRFLUSAL FORSPIRO [Concomitant]
     Active Substance: FLUTICASONE PROPIONATE\SALMETEROL XINAFOATE
     Dosage: 2 OT
  18. FLUTICASON [Concomitant]
     Active Substance: FLUTICASONE
     Indication: PRODUCT USED FOR UNKNOWN INDICATION
     Dosage: 2 DF
     Route: 045

REACTIONS (48)
  - Mucosal haemorrhage [Unknown]
  - Respiratory tract infection [Recovered/Resolved]
  - Haemoptysis [Unknown]
  - Bronchiectasis [Unknown]
  - Thyroid atrophy [Unknown]
  - Haemophilus infection [Unknown]
  - Obstructive airways disorder [Unknown]
  - Chronic sinusitis [Unknown]
  - Tracheobronchitis [Unknown]
  - Pulmonary haemorrhage [Unknown]
  - Blood immunoglobulin E increased [Unknown]
  - Lung disorder [Not Recovered/Not Resolved]
  - Inflammation [Unknown]
  - Osteomyelitis [Recovered/Resolved]
  - Osteomyelitis [Unknown]
  - Bronchitis [Unknown]
  - Bronchial wall thickening [Unknown]
  - Haemoptysis [Unknown]
  - Magnetic resonance imaging thoracic abnormal [Unknown]
  - Pulmonary fibrosis [Not Recovered/Not Resolved]
  - Bronchitis bacterial [Unknown]
  - Tracheobronchitis bacterial [Recovered/Resolved]
  - Cystitis noninfective [Unknown]
  - Bronchiolitis [Unknown]
  - Pulmonary oedema [Unknown]
  - Immunodeficiency [Unknown]
  - Pneumonia [Recovered/Resolved]
  - Pneumonia [Unknown]
  - Haemophilus infection [Recovering/Resolving]
  - Drug intolerance [Unknown]
  - Hilar lymphadenopathy [Unknown]
  - Immunodeficiency [Not Recovered/Not Resolved]
  - Dyspnoea [Unknown]
  - Lung disorder [Unknown]
  - Dyspnoea [Unknown]
  - Haemoptysis [Unknown]
  - Hiatus hernia [Unknown]
  - Bronchial obstruction [Unknown]
  - Hyperthyroidism [Unknown]
  - Conjunctivitis allergic [Unknown]
  - Traumatic lung injury [Unknown]
  - Increased upper airway secretion [Unknown]
  - Hiatus hernia [Recovered/Resolved]
  - Haemoptysis [Not Recovered/Not Resolved]
  - Breath sounds abnormal [Unknown]
  - Staphylococcal infection [Unknown]
  - Infection susceptibility increased [Unknown]
  - Asthma [Unknown]

NARRATIVE: CASE EVENT DATE: 2017
